FAERS Safety Report 7649664-X (Version None)
Quarter: 2011Q3

REPORT INFORMATION
  Report Type: 
  Country: None (occurrence: None)
  Receive Date: 20110802
  Receipt Date: 20110727
  Transmission Date: 20111222
  Serious: No
  Sender: FDA-Public Use
  Company Number: US-PFIZER INC-2011171786

PATIENT
  Sex: Male

DRUGS (1)
  1. PREMARIN [Suspect]
     Indication: OFF LABEL USE
     Dosage: 2.5 MG, 1X/DAY

REACTIONS (8)
  - HIGH DENSITY LIPOPROTEIN INCREASED [None]
  - MUSCLE SPASMS [None]
  - GYNAECOMASTIA [None]
  - HAIR DISORDER [None]
  - ACNE [None]
  - WRONG TECHNIQUE IN DRUG USAGE PROCESS [None]
  - LOW DENSITY LIPOPROTEIN INCREASED [None]
  - MALABSORPTION [None]
